FAERS Safety Report 9196361 (Version 2)
Quarter: 2013Q2

REPORT INFORMATION
  Report Type: Spontaneous
  Country: US (occurrence: None)
  Receive Date: 20120703
  Receipt Date: 20121031
  Transmission Date: 20140414
  Serious: No
  Sender: FDA-Public Use
  Company Number: PHEH2012US005493

PATIENT
  Age: 39 Year
  Sex: Female
  Weight: 69 kg

DRUGS (21)
  1. GILENYA [Suspect]
     Indication: MULTIPLE SCLEROSIS
     Route: 048
     Dates: start: 20111121
  2. DILANTIN (PHENYTOIN SODIUM) [Concomitant]
  3. BACLOFEN (BACLOFEN) (BACLOFEN) [Concomitant]
  4. MINOCIN (MINOCYCLINE HYDROCHLORIDE) [Concomitant]
  5. FAMPRIDINE (FAMPRIDINE) [Concomitant]
  6. HYTRIN (TERAZOSIN HYDROCHLORIDE) [Concomitant]
  7. KLOR-CON (POTASSIUM CHLORIDE) [Concomitant]
  8. IBUPROFEN (IBUPROFEN) [Concomitant]
  9. FISH OIL (FISH OIL) [Concomitant]
  10. CRANBERRY [Concomitant]
  11. MAG (MAGNESIUM PIDOLATE) [Concomitant]
  12. CALCIUM WITH VITAMIN D (CALCIUM PHOSPHATE, CALCIUM SODIUM LACTATE, ERGOCALCIFEROL) [Concomitant]
  13. MULTIVITAMINS (ASCORBIC ACID, ERGOCALCIFEROL, FOLIC ACID, NICOTINAMIDE, PANTHENOL, RETINOL, RIBOFLAVIN, THIAMINE HYDROCHLORIDE) [Concomitant]
  14. GLUCOSAMINE/CHONDROITIN/MSM (CHONDROITIN, GLUCOSAMINE, METHYLSULFONYLMETHANE) [Concomitant]
  15. NAPROSYN (NAPROXEN) [Concomitant]
  16. DULCOLAX (BISACODYL) [Concomitant]
  17. COLACE [Concomitant]
  18. VALTREX (VALACICLOVIR HYDROCHLORIDE) [Concomitant]
  19. CLARITIN (LORATADINE) [Concomitant]
  20. NEURONTIN (GABAPENTIN) [Concomitant]
  21. LORTAB (HYDROCODONE BITARTRATE, PARACETAMOL) [Concomitant]

REACTIONS (10)
  - Burning sensation [None]
  - Neuralgia [None]
  - Muscle spasticity [None]
  - Neuropathy peripheral [None]
  - Neurogenic bladder [None]
  - Blood cholesterol increased [None]
  - Arthralgia [None]
  - Fatigue [None]
  - Multiple sclerosis relapse [None]
  - Vision blurred [None]
